FAERS Safety Report 8161812-4 (Version None)
Quarter: 2012Q1

REPORT INFORMATION
  Report Type: 
  Country: None (occurrence: None)
  Receive Date: 20120103
  Receipt Date: 20110927
  Transmission Date: 20120608
  Serious: No
  Sender: FDA-Public Use
  Company Number: AE-2011-001869

PATIENT
  Age: 52 Year
  Sex: Male

DRUGS (4)
  1. INCIVEK [Suspect]
     Dosage: (1 ORAL T.I.D.), ORAL
     Route: 048
     Dates: start: 20110822
  2. PEGASYS [Concomitant]
  3. RIBAVIRIN [Concomitant]
  4. BIPOLAR MEDS [Concomitant]

REACTIONS (2)
  - UNDERDOSE [None]
  - FATIGUE [None]
